FAERS Safety Report 8713045 (Version 4)
Quarter: 2012Q4

REPORT INFORMATION
  Report Type: Report from Study
  Country: GB (occurrence: GB)
  Receive Date: 20120808
  Receipt Date: 20120926
  Transmission Date: 20130627
  Serious: Yes (Hospitalization)
  Sender: FDA-Public Use
  Company Number: GB-JNJFOC-20120802994

PATIENT
  Age: 15 Year
  Sex: Female
  Weight: 53.4 kg

DRUGS (2)
  1. REMICADE [Suspect]
     Indication: CROHN^S DISEASE
     Route: 042
     Dates: start: 20110620
  2. AZATHIOPRINE [Concomitant]

REACTIONS (1)
  - Crohn^s disease [Recovered/Resolved]
